FAERS Safety Report 26136730 (Version 1)
Quarter: 2025Q4

REPORT INFORMATION
  Report Type: Spontaneous
  Country: US (occurrence: US)
  Receive Date: 20251209
  Receipt Date: 20251209
  Transmission Date: 20260118
  Serious: Yes (Other)
  Sender: TAKEDA
  Company Number: US-TAKEDA-2025TUS109289

PATIENT
  Age: 26 Year
  Sex: Female

DRUGS (3)
  1. CARBAMAZEPINE [Suspect]
     Active Substance: CARBAMAZEPINE
     Indication: Facial pain
     Dosage: 300 MILLIGRAM, BID
  2. CARBAMAZEPINE [Suspect]
     Active Substance: CARBAMAZEPINE
     Dosage: 900 MILLIGRAM, BID
  3. CARBAMAZEPINE [Suspect]
     Active Substance: CARBAMAZEPINE
     Dosage: 600 MILLIGRAM, QD

REACTIONS (2)
  - Drug-induced liver injury [Unknown]
  - Drug reaction with eosinophilia and systemic symptoms [Unknown]
